FAERS Safety Report 4599254-0 (Version None)
Quarter: 2005Q1

REPORT INFORMATION
  Report Type: 
  Country: None (occurrence: None)
  Receive Date: 20050302
  Receipt Date: 20050302
  Transmission Date: 20050727
  Serious: Yes (Hospitalization)
  Sender: FDA-Public Use
  Company Number: None

PATIENT
  Age: 55 Year
  Sex: Female
  Weight: 43.0917 kg

DRUGS (1)
  1. IMITREX [Suspect]
     Indication: MIGRAINE
     Dosage: 25 MG  TWICE ONLY ORAL
     Route: 048
     Dates: start: 20050118, end: 20050118

REACTIONS (11)
  - ANXIETY [None]
  - DIZZINESS [None]
  - FEAR [None]
  - FEELING ABNORMAL [None]
  - FEELING HOT [None]
  - FEELING HOT AND COLD [None]
  - HEART RATE INCREASED [None]
  - PARAESTHESIA [None]
  - THROAT IRRITATION [None]
  - THROAT TIGHTNESS [None]
  - TREMOR [None]
